FAERS Safety Report 23470964 (Version 1)
Quarter: 2024Q1

REPORT INFORMATION
  Report Type: Spontaneous
  Country: HR (occurrence: HR)
  Receive Date: 20240202
  Receipt Date: 20240202
  Transmission Date: 20240410
  Serious: Yes (Death, Life-Threatening, Hospitalization, Disabling, Other)
  Sender: FDA-Public Use
  Company Number: HR-002147023-NVSC2019HR079092

PATIENT
  Age: 40 Year
  Sex: Female

DRUGS (32)
  1. AZACITIDINE [Suspect]
     Active Substance: AZACITIDINE
     Indication: Acute myeloid leukaemia
     Dosage: THREE CYCLES
     Route: 065
  2. ACYCLOVIR [Suspect]
     Active Substance: ACYCLOVIR
     Indication: Antibiotic prophylaxis
     Dosage: UNK
     Route: 065
  3. ACYCLOVIR [Suspect]
     Active Substance: ACYCLOVIR
     Indication: Prophylaxis
  4. CIPROFLOXACIN [Suspect]
     Active Substance: CIPROFLOXACIN
     Indication: Antibiotic prophylaxis
     Dosage: ( R-CHOEP PROTOCOL)
     Route: 065
  5. CIPROFLOXACIN [Suspect]
     Active Substance: CIPROFLOXACIN
     Indication: Prophylaxis
     Dosage: (3 CYCLES R-CHEVP PROTOCOL)
     Route: 065
  6. DOXIL [Suspect]
     Active Substance: DOXORUBICIN HYDROCHLORIDE
     Indication: Diffuse large B-cell lymphoma stage IV
     Dosage: FIVE CYCLES (R-CHOEP PROTOCOL) AND THREE CYCLES (R-CHEVP PROTOCOL)
     Route: 042
  7. ETOPOSIDE [Suspect]
     Active Substance: ETOPOSIDE
     Indication: Diffuse large B-cell lymphoma stage IV
     Dosage: FIVE CYCLES ( R-CHOEP PROTOCOL) AND THREE CYCLES (R-CHEVP PROTOCOL)
     Route: 065
  8. ETOPOSIDE [Suspect]
     Active Substance: ETOPOSIDE
     Dosage: THREE CYCLES (R-CHEVP PROTOCOL) AND THREE CYCLES (R-CHEVP PROTOCOL)
     Route: 065
  9. CYCLOPHOSPHAMIDE [Suspect]
     Active Substance: CYCLOPHOSPHAMIDE
     Indication: Diffuse large B-cell lymphoma stage IV
     Dosage: FIVE CYCLES (R-CHOEP PROTOCOL) AND THREE CYCLES (R-CHEVP PROTOCO
     Route: 065
  10. FLUCONAZOLE [Suspect]
     Active Substance: FLUCONAZOLE
     Indication: Antibiotic prophylaxis
     Dosage: UNK
     Route: 065
  11. METHYLPREDNISOLONE [Suspect]
     Active Substance: METHYLPREDNISOLONE
     Indication: Diffuse large B-cell lymphoma stage IV
     Dosage: FIVE CYCLES ( R-CHOEP PROTOCOL) AND THREE CYCLES (R-CHEVP PROTOCOL)
     Route: 065
  12. RITUXIMAB [Suspect]
     Active Substance: RITUXIMAB
     Indication: Diffuse large B-cell lymphoma stage IV
     Dosage: FIVE CYCLES (R-CHOEP PROTOCOL) AND THREE CYCLES (R-CHEVP PROTOCOL) , CYCLIC
     Route: 065
  13. THIOGUANINE [Suspect]
     Active Substance: THIOGUANINE
     Indication: Diffuse large B-cell lymphoma stage IV
     Dosage: UNK
     Route: 065
  14. THIOGUANINE [Suspect]
     Active Substance: THIOGUANINE
     Indication: Myelodysplastic syndrome with excess blasts
  15. VINBLASTINE SULFATE [Suspect]
     Active Substance: VINBLASTINE SULFATE
     Indication: Diffuse large B-cell lymphoma stage IV
     Dosage: UNK, CYCLIC, THREE CYCLES (R-CHEVP PROTOCOL)
     Route: 065
  16. VINCRISTINE [Suspect]
     Active Substance: VINCRISTINE
     Indication: Diffuse large B-cell lymphoma stage IV
     Dosage: FIVE CYCLES ( R-CHOEP PROTOCOL)
     Route: 065
  17. ALDACTONE [Concomitant]
     Active Substance: SPIRONOLACTONE
     Indication: Product used for unknown indication
     Dosage: UNK
     Route: 065
  18. BETAMETHASONE [Concomitant]
     Active Substance: BETAMETHASONE\BETAMETHASONE DIPROPIONATE
     Indication: Product used for unknown indication
     Dosage: UNK
     Route: 065
  19. CARVEDILOL [Concomitant]
     Active Substance: CARVEDILOL
     Indication: Product used for unknown indication
     Dosage: UNK
     Route: 065
  20. CONTROLOC [Concomitant]
     Active Substance: PANTOPRAZOLE SODIUM
     Indication: Product used for unknown indication
     Dosage: UNK
     Route: 065
  21. CONTROLOC CONTROL [Concomitant]
     Indication: Product used for unknown indication
     Dosage: UNK
     Route: 065
  22. Curasept [Concomitant]
     Indication: Mouth ulceration
     Dosage: UNK, TID
     Route: 065
  23. BENZYDAMINE [Concomitant]
     Active Substance: BENZYDAMINE
     Indication: Mouth ulceration
     Dosage: UNK
     Route: 065
  24. DIFLUCAN [Concomitant]
     Active Substance: FLUCONAZOLE
     Indication: Prophylaxis
     Dosage: UNK
     Route: 065
  25. DOLOKAIN [Concomitant]
     Indication: Mouth ulceration
     Dosage: UNK
     Route: 065
  26. DOLOKAIN [Concomitant]
     Dosage: UNK
     Route: 065
  27. FUROSEMIDE [Concomitant]
     Active Substance: FUROSEMIDE
     Indication: Product used for unknown indication
     Dosage: UNK
     Route: 065
  28. Gelclair [Concomitant]
     Indication: Mouth ulceration
     Dosage: UNK
     Route: 065
  29. METILDIGOXIN [Concomitant]
     Active Substance: METILDIGOXIN
     Indication: Product used for unknown indication
     Dosage: UNK
     Route: 065
  30. METILDIGOXIN [Concomitant]
     Active Substance: METILDIGOXIN
     Indication: Product used for unknown indication
     Dosage: UNK
     Route: 065
  31. METILDIGOXIN [Concomitant]
     Active Substance: METILDIGOXIN
     Indication: Product used for unknown indication
  32. RAMIPRIL [Concomitant]
     Active Substance: RAMIPRIL
     Indication: Product used for unknown indication
     Dosage: UNK
     Route: 065

REACTIONS (19)
  - Dilated cardiomyopathy [Fatal]
  - Pancytopenia [Fatal]
  - Toxic neuropathy [Fatal]
  - Aspergillus infection [Fatal]
  - Myelodysplastic syndrome with excess blasts [Fatal]
  - Acute myeloid leukaemia [Fatal]
  - Neutropenia [Fatal]
  - Thrombocytopenia [Fatal]
  - Mouth ulceration [Fatal]
  - Leukaemia [Fatal]
  - Staphylococcal sepsis [Fatal]
  - Bacterial sepsis [Fatal]
  - Sinusitis [Fatal]
  - Myelodysplastic syndrome [Unknown]
  - Stenotrophomonas infection [Unknown]
  - Toxicity to various agents [Unknown]
  - Gingival ulceration [Not Recovered/Not Resolved]
  - Enterococcal infection [Unknown]
  - Product use in unapproved indication [Unknown]
